FAERS Safety Report 5046413-9 (Version None)
Quarter: 2006Q2

REPORT INFORMATION
  Report Type: 
  Country: None (occurrence: None)
  Receive Date: 20060629
  Receipt Date: 20060615
  Transmission Date: 20061013
  Serious: Yes (Other)
  Sender: FDA-Public Use
  Company Number: 2006PV015459

PATIENT
  Age: 64 Year
  Sex: Female
  Weight: 76.2043 kg

DRUGS (19)
  1. BYETTA [Suspect]
     Indication: DIABETES MELLITUS NON-INSULIN-DEPENDENT
     Dosage: 5 MCG; BID; SC;  10 MCG; BID; SC
     Route: 058
     Dates: start: 20060425, end: 20060525
  2. BYETTA [Suspect]
     Indication: DIABETES MELLITUS NON-INSULIN-DEPENDENT
     Dosage: 5 MCG; BID; SC;  10 MCG; BID; SC
     Route: 058
     Dates: start: 20060526, end: 20060613
  3. AMARYL [Concomitant]
  4. PRANDIN [Concomitant]
  5. HYDROCORTISONE [Concomitant]
  6. DHEA [Concomitant]
  7. CYTOMEL [Concomitant]
  8. LEVOXYL [Concomitant]
  9. NORCO [Concomitant]
  10. GENOPROTIN [Concomitant]
  11. CLONIDINE [Concomitant]
  12. XANAX [Concomitant]
  13. POTASSIUM [Concomitant]
  14. VALIUM [Concomitant]
  15. ZOFRAN [Concomitant]
  16. SOMA [Concomitant]
  17. AMBIEN [Concomitant]
  18. LUNESTA [Concomitant]
  19. RESTORIL [Concomitant]

REACTIONS (7)
  - BLOOD GLUCOSE INCREASED [None]
  - DIZZINESS [None]
  - HEADACHE [None]
  - IMPAIRED GASTRIC EMPTYING [None]
  - ROAD TRAFFIC ACCIDENT [None]
  - SOMNOLENCE [None]
  - SYNCOPE [None]
